FAERS Safety Report 23247349 (Version 1)
Quarter: 2023Q4

REPORT INFORMATION
  Report Type: Report from Study
  Country: HK (occurrence: None)
  Receive Date: 20231130
  Receipt Date: 20231130
  Transmission Date: 20240109
  Serious: Yes (Hospitalization)
  Sender: FDA-Public Use
  Company Number: 2023A267223

PATIENT
  Age: 71 Year
  Sex: Female
  Weight: 49.7 kg

DRUGS (8)
  1. CILGAVIMAB\TIXAGEVIMAB [Suspect]
     Active Substance: CILGAVIMAB\TIXAGEVIMAB
     Indication: Prophylaxis
     Route: 030
     Dates: start: 20221115, end: 20221115
  2. VALACYCLOVIR HCL TABLET [Concomitant]
     Indication: Symptomatic treatment
     Route: 048
     Dates: start: 20220121
  3. ZOPICLONE [Concomitant]
     Active Substance: ZOPICLONE
     Indication: Symptomatic treatment
     Route: 048
     Dates: start: 20220221
  4. FAMOTIDINE [Concomitant]
     Active Substance: FAMOTIDINE
     Indication: Prophylaxis
     Route: 048
     Dates: start: 20220207
  5. CALCIUM CARBONATE + VITAMIN D CHEWABLE TABLET [Concomitant]
     Indication: Symptomatic treatment
     Route: 048
     Dates: start: 20220114
  6. TIMOLOL MALEATE [Concomitant]
     Active Substance: TIMOLOL MALEATE
     Indication: Symptomatic treatment
     Route: 047
     Dates: start: 20220429
  7. CINNARIZINE TABLET [Concomitant]
     Indication: Symptomatic treatment
     Route: 048
     Dates: start: 20230515, end: 20230530
  8. AMOXICILLIN\CLAVULANIC ACID [Concomitant]
     Active Substance: AMOXICILLIN\CLAVULANIC ACID
     Indication: Symptomatic treatment
     Route: 048
     Dates: start: 20230515, end: 20230518

REACTIONS (2)
  - Haemoptysis [Recovered/Resolved]
  - Vertigo positional [Recovered/Resolved]

NARRATIVE: CASE EVENT DATE: 20230513
